FAERS Safety Report 16897485 (Version 2)
Quarter: 2019Q4

REPORT INFORMATION
  Report Type: Spontaneous
  Country: US (occurrence: US)
  Receive Date: 20191009
  Receipt Date: 20191009
  Transmission Date: 20200122
  Serious: Yes (Other)
  Sender: FDA-Public Use
  Company Number: US-SHIRE-US201932827

PATIENT
  Sex: Male

DRUGS (1)
  1. XIIDRA [Suspect]
     Active Substance: LIFITEGRAST
     Indication: DRY EYE
     Dosage: 1 GTT DROPS, 2X/DAY:BID (TWICE A DAY)
     Route: 047
     Dates: start: 2019, end: 2019

REACTIONS (2)
  - Hypersensitivity [Recovering/Resolving]
  - Dermatitis contact [Recovering/Resolving]
